FAERS Safety Report 15371842 (Version 1)
Quarter: 2018Q3

REPORT INFORMATION
  Report Type: Spontaneous
  Country: US (occurrence: US)
  Receive Date: 20180911
  Receipt Date: 20180911
  Transmission Date: 20181010
  Serious: No
  Sender: FDA-Public Use
  Company Number: US-PFIZER INC-2018362424

PATIENT
  Age: 49 Year
  Sex: Female
  Weight: 54.43 kg

DRUGS (6)
  1. GABAPENTIN. [Suspect]
     Active Substance: GABAPENTIN
     Dosage: 100 MG, UNK
  2. GABAPENTIN. [Suspect]
     Active Substance: GABAPENTIN
     Dosage: 300 MG, 3X/DAY
     Route: 048
  3. HYDROCODONE [Concomitant]
     Active Substance: HYDROCODONE
     Indication: MUSCLE SPASMS
     Dosage: 10 MG, AS NEEDED (10MG UP TO THREE TIMES A DAY AS NEEDED BY MOUTH)
     Route: 048
  4. GABAPENTIN. [Suspect]
     Active Substance: GABAPENTIN
     Indication: NEURALGIA
     Dosage: 300 MG, 1X/DAY(300MG ONCE A DAY FOR THE FIRST WEEK)
  5. GABAPENTIN. [Suspect]
     Active Substance: GABAPENTIN
     Dosage: 300 MG, 2X/DAY(INCREASED HER DOSAGE TO TWICE A DAY BY THE SECOND WEEK)
  6. ROBAXIN [Concomitant]
     Active Substance: METHOCARBAMOL
     Dosage: UP TO THREE TIMES A DAY BY MOUTH AS NEEDED
     Route: 048

REACTIONS (2)
  - Drug ineffective for unapproved indication [Unknown]
  - Vertigo [Unknown]
